FAERS Safety Report 18814280 (Version 1)
Quarter: 2021Q1

REPORT INFORMATION
  Report Type: Spontaneous
  Country: HU (occurrence: HU)
  Receive Date: 20210201
  Receipt Date: 20210201
  Transmission Date: 20210419
  Serious: Yes (Hospitalization)
  Sender: FDA-Public Use
  Company Number: HU-TEVA-2021-HU-1873739

PATIENT
  Age: 77 Year
  Sex: Male

DRUGS (4)
  1. MERCKFORMIN [Concomitant]
     Active Substance: METFORMIN HYDROCHLORIDE
     Indication: DIABETES MELLITUS
     Dosage: 1000 MG
     Route: 048
  2. RAMIPRIL. [Suspect]
     Active Substance: RAMIPRIL
     Indication: HYPERTENSION
     Dosage: 2.5 MG
     Route: 048
  3. ASPIRIN PROTECT [Suspect]
     Active Substance: ASPIRIN
     Dosage: 100 MG
     Route: 048
  4. BISOPROLOL SANDOZ [Concomitant]
     Active Substance: BISOPROLOL
     Indication: HYPERTENSION
     Dosage: 5 MG
     Route: 048

REACTIONS (4)
  - Lip swelling [Recovered/Resolved]
  - Dyspnoea [Recovered/Resolved]
  - Tongue oedema [Recovered/Resolved]
  - Rash pruritic [Recovered/Resolved]

NARRATIVE: CASE EVENT DATE: 20210103
